FAERS Safety Report 21369024 (Version 4)
Quarter: 2022Q4

REPORT INFORMATION
  Report Type: Spontaneous
  Country: US (occurrence: US)
  Receive Date: 20220923
  Receipt Date: 20221018
  Transmission Date: 20230113
  Serious: Yes (Hospitalization, Other)
  Sender: FDA-Public Use
  Company Number: US-BRISTOL-MYERS SQUIBB COMPANY-2022-110371

PATIENT
  Age: 70 Year
  Sex: Male

DRUGS (3)
  1. REVLIMID [Suspect]
     Active Substance: LENALIDOMIDE
     Indication: Plasma cell myeloma
     Dosage: 15 MG, 1 CAPSULE EVERYDAY FOR 14 DAYS THEN OFF FOR 7 DAYS
     Route: 048
     Dates: start: 20181116
  2. REVLIMID [Suspect]
     Active Substance: LENALIDOMIDE
     Dosage: TAKE 1 CAPSULE BY MOUTH EVERY DAY FOR 14DAYS THEN OFF FOR 7DAYS
     Route: 048
     Dates: start: 20181116
  3. REVLIMID [Suspect]
     Active Substance: LENALIDOMIDE
     Dosage: TAKE 1 CAPSULE BY MOUTH EVERY DAY FOR 14 DAYS THEN OFF FOR 7 DAYS
     Route: 048
     Dates: start: 20181116

REACTIONS (2)
  - Intestinal obstruction [Recovered/Resolved]
  - Off label use [Recovered/Resolved]
